FAERS Safety Report 20026811 (Version 2)
Quarter: 2021Q4

REPORT INFORMATION
  Report Type: Report from Study
  Country: CA (occurrence: CA)
  Receive Date: 20211103
  Receipt Date: 20211123
  Transmission Date: 20220303
  Serious: Yes (Other)
  Sender: FDA-Public Use
  Company Number: CA-ABBVIE-21K-028-4145169-00

PATIENT
  Age: 50 Year
  Sex: Female

DRUGS (5)
  1. HUMIRA [Suspect]
     Active Substance: ADALIMUMAB
     Indication: Ankylosing spondylitis
     Route: 058
     Dates: start: 20180723
  2. HUMIRA [Suspect]
     Active Substance: ADALIMUMAB
     Indication: Crohn^s disease
  3. METHOTREXATE [Concomitant]
     Active Substance: METHOTREXATE
     Indication: Product used for unknown indication
     Route: 048
  4. COVID-19 VACCINE [Concomitant]
     Indication: COVID-19 immunisation
     Dosage: 1ST DOSE
     Route: 030
  5. COVID-19 VACCINE [Concomitant]
     Dosage: 2ND DOSE
     Route: 030

REACTIONS (14)
  - Traumatic shock [Unknown]
  - Mobility decreased [Unknown]
  - Weight decreased [Unknown]
  - Amnesia [Not Recovered/Not Resolved]
  - Feeling hot [Unknown]
  - Hernia [Unknown]
  - Osteoarthritis [Unknown]
  - Depressed mood [Unknown]
  - Fall [Unknown]
  - Arthropathy [Unknown]
  - Back pain [Unknown]
  - Musculoskeletal stiffness [Unknown]
  - Pain in extremity [Unknown]
  - Drug specific antibody present [Unknown]

NARRATIVE: CASE EVENT DATE: 20200101
